FAERS Safety Report 7113556-5 (Version None)
Quarter: 2010Q4

REPORT INFORMATION
  Report Type: 
  Country: None (occurrence: None)
  Receive Date: 20101119
  Receipt Date: 20101108
  Transmission Date: 20110411
  Serious: No
  Sender: FDA-Public Use
  Company Number: US-PFIZER INC-2010144952

PATIENT
  Sex: Male
  Weight: 88.889 kg

DRUGS (5)
  1. PRISTIQ [Suspect]
     Indication: DEPRESSION
     Dosage: 50 MG, 1X/DAY
     Route: 048
     Dates: start: 20100401
  2. PRISTIQ [Suspect]
     Indication: ANXIETY
  3. CLONAZEPAM [Concomitant]
     Dosage: UNK
  4. AMBIEN [Concomitant]
     Dosage: UNK
  5. ATRIPLA [Concomitant]
     Dosage: UNK

REACTIONS (7)
  - DRUG INEFFECTIVE [None]
  - EAR PAIN [None]
  - MEDICATION RESIDUE [None]
  - NASOPHARYNGITIS [None]
  - SINUS CONGESTION [None]
  - VIRAL LOAD INCREASED [None]
  - WEIGHT DECREASED [None]
